FAERS Safety Report 4786715-4 (Version None)
Quarter: 2005Q4

REPORT INFORMATION
  Report Type: 
  Country: None (occurrence: None)
  Receive Date: 20051003
  Receipt Date: 20051003
  Transmission Date: 20060501
  Serious: Yes (Other)
  Sender: FDA-Public Use
  Company Number: None

PATIENT
  Age: 8 Year
  Sex: Female
  Weight: 22.6799 kg

DRUGS (1)
  1. BLOCK UP! BABY 45  SPF 45    FRUIT OF THE EARTH [Suspect]
     Indication: PROPHYLAXIS AGAINST SOLAR RADIATION

REACTIONS (2)
  - SUNBURN [None]
  - THERAPEUTIC PRODUCT INEFFECTIVE [None]
